FAERS Safety Report 7239418-0 (Version None)
Quarter: 2011Q1

REPORT INFORMATION
  Report Type: 
  Country: None (occurrence: None)
  Receive Date: 20110121
  Receipt Date: 20101229
  Transmission Date: 20110831
  Serious: Yes (Death, Hospitalization)
  Sender: FDA-Public Use
  Company Number: PHHY2010US90350

PATIENT
  Sex: Male
  Weight: 101 kg

DRUGS (18)
  1. TOBI [Suspect]
     Indication: CYSTIC FIBROSIS
     Dosage: 300 MG, BID
     Dates: start: 20101013, end: 20101128
  2. MIRAPEX [Concomitant]
     Dosage: 0.25 MG, QD
  3. LASIX [Concomitant]
     Dosage: 40 MG, QD
  4. LISINOPRIL [Concomitant]
     Dosage: 5 MG, QD
  5. ADVAIR [Concomitant]
     Dosage: 500-50, DISKUS BID
  6. FOSAMAX [Concomitant]
     Dosage: 70 MG, QW
  7. SINGULAIR [Concomitant]
     Dosage: 10 MG, QD
  8. SERTRALINE [Concomitant]
     Dosage: 50 MG, QD
  9. ACETYLSALICYLIC ACID [Concomitant]
     Dosage: 81 MG, QD
  10. POTASSIUM CHLORIDE [Concomitant]
     Dosage: 10 MEQ, QD
  11. GLYBURIDE [Concomitant]
     Dosage: 5 MG, QD
  12. FLONASE [Concomitant]
     Dosage: 0.05 %, UNK
  13. COMBIVENT [Concomitant]
  14. FLOMAX [Concomitant]
     Dosage: 0.4 MG, QD
  15. SPIRIVA [Concomitant]
     Dosage: 18 UG, UNK
  16. IPRATROPIUM BROMIDE [Concomitant]
     Dosage: 0.02 %, UNK
  17. MUCINEX [Concomitant]
     Dosage: 600 MG, UNK
  18. CALCIUM [Concomitant]
     Dosage: 600 MG, QD

REACTIONS (2)
  - CHRONIC OBSTRUCTIVE PULMONARY DISEASE [None]
  - CHRONIC RESPIRATORY FAILURE [None]
